FAERS Safety Report 6935798-1 (Version None)
Quarter: 2010Q3

REPORT INFORMATION
  Report Type: 
  Country: None (occurrence: None)
  Receive Date: 20100823
  Receipt Date: 20100809
  Transmission Date: 20110219
  Serious: Yes (Other)
  Sender: FDA-Public Use
  Company Number: DE-ELI_LILLY_AND_COMPANY-DE201008002479

PATIENT
  Age: 29 Year
  Sex: Male

DRUGS (2)
  1. ZYPADHERA [Suspect]
     Indication: SCHIZOPHRENIA
     Dosage: 300 MG, EVERY TWO WEEKS
     Route: 030
  2. VALPROAT [Concomitant]
     Dosage: 1000 MG, 2/D
     Dates: start: 20100712

REACTIONS (2)
  - FATIGUE [None]
  - VISUAL IMPAIRMENT [None]
